FAERS Safety Report 4486353-7 (Version None)
Quarter: 2004Q4

REPORT INFORMATION
  Report Type: 
  Country: None (occurrence: None)
  Receive Date: 20041021
  Receipt Date: 20041004
  Transmission Date: 20050328
  Serious: No
  Sender: FDA-Public Use
  Company Number: A02200402427

PATIENT
  Age: 64 Year
  Sex: Female

DRUGS (5)
  1. ELOXATINE - (OXALIPLATIN) - POWDER- 5 MG/ML [Suspect]
     Indication: COLON CANCER
     Dosage: 85 MG/M2; OTHER; INTRAVENOUS NOS
     Route: 042
     Dates: start: 20040803, end: 20040803
  2. FLUOROURACIL [Concomitant]
  3. FOLINIC ACID [Concomitant]
  4. POLARAMINE [Concomitant]
  5. CORTICOSTEROIDS [Concomitant]

REACTIONS (6)
  - CIRCULATORY COLLAPSE [None]
  - HYPERHIDROSIS [None]
  - LOSS OF CONSCIOUSNESS [None]
  - MALAISE [None]
  - SHOCK [None]
  - URINARY INCONTINENCE [None]
